FAERS Safety Report 6782692-5 (Version None)
Quarter: 2010Q2

REPORT INFORMATION
  Report Type: 
  Country: None (occurrence: None)
  Receive Date: 20100621
  Receipt Date: 20100611
  Transmission Date: 20101027
  Serious: Yes (Hospitalization)
  Sender: FDA-Public Use
  Company Number: ES-ABBOTT-10P-144-0650662-00

PATIENT
  Age: 83 Year
  Sex: Male

DRUGS (6)
  1. LIPARISON [Suspect]
     Indication: HYPERTENSION
     Route: 048
     Dates: start: 20090723, end: 20100506
  2. OMEPRAZOLE [Concomitant]
     Indication: DRUG USE FOR UNKNOWN INDICATION
     Route: 048
  3. ESERTIA [Concomitant]
     Indication: DRUG USE FOR UNKNOWN INDICATION
     Dates: start: 20080801
  4. PLACIMORAL [Concomitant]
     Indication: DRUG USE FOR UNKNOWN INDICATION
     Dates: start: 20080824
  5. PRANDIN [Concomitant]
     Indication: DRUG USE FOR UNKNOWN INDICATION
     Dates: start: 20090914
  6. REMINYL [Concomitant]
     Indication: DRUG USE FOR UNKNOWN INDICATION
     Dates: start: 20090610

REACTIONS (1)
  - HEPATITIS [None]
